FAERS Safety Report 6238107-9 (Version None)
Quarter: 2009Q2

REPORT INFORMATION
  Report Type: 
  Country: None (occurrence: None)
  Receive Date: 20090622
  Receipt Date: 20090612
  Transmission Date: 20091009
  Serious: Yes (Other)
  Sender: FDA-Public Use
  Company Number: GB-JNJFOC-20090604914

PATIENT
  Age: 46 Year
  Sex: Female

DRUGS (5)
  1. REMICADE [Suspect]
     Indication: COLITIS
     Route: 042
  2. ASACOL [Concomitant]
     Indication: COLITIS
     Route: 048
  3. LANSOPRAZOLE [Concomitant]
     Route: 048
  4. MICRONOR [Concomitant]
     Indication: CONTRACEPTION
     Route: 048
  5. LEVOTHYROXINE SODIUM [Concomitant]
     Route: 048

REACTIONS (2)
  - CERVICAL DYSPLASIA [None]
  - VULVAR DYSPLASIA [None]
